FAERS Safety Report 21989461 (Version 1)
Quarter: 2023Q1

REPORT INFORMATION
  Report Type: Spontaneous
  Country: US (occurrence: US)
  Receive Date: 20230214
  Receipt Date: 20230214
  Transmission Date: 20230418
  Serious: Yes (Other)
  Sender: FDA-Public Use
  Company Number: US-AMGEN-USASP2023024922

PATIENT
  Age: 53 Year
  Sex: Male

DRUGS (2)
  1. CORLANOR [Suspect]
     Active Substance: IVABRADINE HYDROCHLORIDE
     Indication: Heart rate increased
     Dosage: 5 MG
     Route: 065
  2. CORLANOR [Suspect]
     Active Substance: IVABRADINE HYDROCHLORIDE
     Indication: Cardiac failure

REACTIONS (3)
  - Atrial fibrillation [Unknown]
  - Dizziness [Unknown]
  - Chest pain [Unknown]
